FAERS Safety Report 13754664 (Version 1)
Quarter: 2017Q3

REPORT INFORMATION
  Report Type: Spontaneous
  Country: US (occurrence: US)
  Receive Date: 20170714
  Receipt Date: 20170714
  Transmission Date: 20171127
  Serious: Yes (Hospitalization)
  Sender: FDA-Public Use
  Company Number: US-ABBVIE-17K-163-2034093-00

PATIENT
  Age: 32 Year

DRUGS (1)
  1. HUMIRA [Suspect]
     Active Substance: ADALIMUMAB
     Indication: CROHN^S DISEASE
     Route: 058

REACTIONS (16)
  - Pharyngeal inflammation [Unknown]
  - Nausea [Unknown]
  - Anaemia [Unknown]
  - Syncope [Unknown]
  - Gastrointestinal haemorrhage [Unknown]
  - Oropharyngeal discomfort [Unknown]
  - Enteritis [Unknown]
  - Ileal stenosis [Unknown]
  - Faeces discoloured [Unknown]
  - Abdominal discomfort [Unknown]
  - Drug ineffective [Unknown]
  - Crohn^s disease [Unknown]
  - Faecal calprotectin increased [Unknown]
  - Fear [Unknown]
  - Haemoglobin decreased [Unknown]
  - Pyrexia [Unknown]

NARRATIVE: CASE EVENT DATE: 201704
